FAERS Safety Report 15067601 (Version 1)
Quarter: 2018Q2

REPORT INFORMATION
  Report Type: Spontaneous
  Country: US (occurrence: US)
  Receive Date: 20180626
  Receipt Date: 20180626
  Transmission Date: 20180711
  Serious: No
  Sender: FDA-Public Use
  Company Number: US-GLAXOSMITHKLINE-US2018111494

PATIENT
  Age: 68 Year
  Sex: Female

DRUGS (4)
  1. OXYGEN. [Concomitant]
     Active Substance: OXYGEN
  2. NEBULIZED ALBUTEROL [Concomitant]
     Active Substance: ALBUTEROL
  3. TRELEGY ELLIPTA [Suspect]
     Active Substance: FLUTICASONE FUROATE\UMECLIDINIUM BROMIDE\VILANTEROL TRIFENATATE
     Indication: CHRONIC OBSTRUCTIVE PULMONARY DISEASE
     Dosage: 1 PUFF(S), QD
     Route: 055
     Dates: start: 2017
  4. VENTOLIN HFA [Concomitant]
     Active Substance: ALBUTEROL SULFATE

REACTIONS (4)
  - Drug ineffective [Recovered/Resolved]
  - Wrong technique in device usage process [Unknown]
  - Dyspnoea [Recovered/Resolved]
  - Drug dose omission [Recovered/Resolved]

NARRATIVE: CASE EVENT DATE: 20180621
